FAERS Safety Report 25724882 (Version 1)
Quarter: 2025Q3

REPORT INFORMATION
  Report Type: Spontaneous
  Country: CN (occurrence: CN)
  Receive Date: 20250826
  Receipt Date: 20250826
  Transmission Date: 20251020
  Serious: Yes (Hospitalization, Other)
  Sender: NOVITIUM PHARMA
  Company Number: CN-NOVITIUMPHARMA-2025CNNVP02154

PATIENT
  Age: 25 Year
  Sex: Female

DRUGS (8)
  1. PREDNISONE [Suspect]
     Active Substance: PREDNISONE
     Indication: Prophylaxis against transplant rejection
     Dates: start: 20200601
  2. PREDNISONE [Suspect]
     Active Substance: PREDNISONE
     Dates: start: 20200801
  3. PREDNISONE [Suspect]
     Active Substance: PREDNISONE
  4. MYCOPHENOLATE SODIUM [Concomitant]
     Active Substance: MYCOPHENOLATE SODIUM
     Dates: start: 20200601
  5. TACROLIMUS [Concomitant]
     Active Substance: TACROLIMUS
     Dates: start: 20200601
  6. TACROLIMUS [Concomitant]
     Active Substance: TACROLIMUS
     Dates: start: 20200801
  7. LEFLUNOMIDE [Concomitant]
     Active Substance: LEFLUNOMIDE
     Dates: start: 20200801
  8. LEFLUNOMIDE [Concomitant]
     Active Substance: LEFLUNOMIDE

REACTIONS (1)
  - Polyomavirus-associated nephropathy [Unknown]
